FAERS Safety Report 16441973 (Version 1)
Quarter: 2019Q2

REPORT INFORMATION
  Report Type: Report from Study
  Country: None (occurrence: US)
  Receive Date: 20190617
  Receipt Date: 20190617
  Transmission Date: 20190711
  Serious: No
  Sender: FDA-Public Use
  Company Number: US-US WORLDMEDS, LLC-USW201810-001580

PATIENT
  Age: 82 Year
  Sex: Female
  Weight: 40.82 kg

DRUGS (4)
  1. SINEMET [Concomitant]
     Active Substance: CARBIDOPA\LEVODOPA
  2. APOKYN [Suspect]
     Active Substance: APOMORPHINE HYDROCHLORIDE
     Indication: PARKINSON^S DISEASE
     Route: 058
     Dates: start: 20181019, end: 20181020
  3. TRIMETHOBENZAMIDE [Concomitant]
     Active Substance: TRIMETHOBENZAMIDE
     Dates: start: 20181016
  4. CARAFATE [Concomitant]
     Active Substance: SUCRALFATE

REACTIONS (2)
  - Nasopharyngitis [Unknown]
  - Tremor [Unknown]

NARRATIVE: CASE EVENT DATE: 20181019
